FAERS Safety Report 24785538 (Version 1)
Quarter: 2024Q4

REPORT INFORMATION
  Report Type: Spontaneous
  Country: US (occurrence: US)
  Receive Date: 20241228
  Receipt Date: 20241228
  Transmission Date: 20250115
  Serious: No
  Sender: SANOFI AVENTIS
  Company Number: US-SA-2024SA380933

PATIENT
  Sex: Female

DRUGS (1)
  1. DUPIXENT [Suspect]
     Active Substance: DUPILUMAB
     Indication: Eczema
     Dosage: 200 MG, Q4W
     Route: 058
     Dates: start: 20241018

REACTIONS (5)
  - Pruritus [Not Recovered/Not Resolved]
  - Milk allergy [Not Recovered/Not Resolved]
  - Eczema [Unknown]
  - Erythema [Unknown]
  - Skin abrasion [Unknown]

NARRATIVE: CASE EVENT DATE: 20240101
